FAERS Safety Report 8182766-0 (Version None)
Quarter: 2012Q1

REPORT INFORMATION
  Report Type: 
  Country: None (occurrence: None)
  Receive Date: 20120305
  Receipt Date: 20120224
  Transmission Date: 20120608
  Serious: Yes (Other)
  Sender: FDA-Public Use
  Company Number: US-BAYER-2011-081941

PATIENT
  Sex: Female
  Weight: 73 kg

DRUGS (1)
  1. YAZ [Suspect]
     Indication: CONTRACEPTION
     Dosage: UNK
     Dates: start: 20070101, end: 20071201

REACTIONS (4)
  - CHOLECYSTITIS [None]
  - INJURY [None]
  - PAIN [None]
  - GALLBLADDER NON-FUNCTIONING [None]
